FAERS Safety Report 8212178-2 (Version None)
Quarter: 2012Q1

REPORT INFORMATION
  Report Type: 
  Country: None (occurrence: None)
  Receive Date: 20120315
  Receipt Date: 20120307
  Transmission Date: 20120608
  Serious: Yes (Other)
  Sender: FDA-Public Use
  Company Number: US-ROCHE-1046972

PATIENT
  Sex: Female
  Weight: 23.3 kg

DRUGS (1)
  1. XOLAIR [Suspect]
     Indication: PRODUCT USED FOR UNKNOWN INDICATION
     Route: 058
     Dates: start: 20120224, end: 20120224

REACTIONS (5)
  - COUGH [None]
  - DYSPNOEA [None]
  - WHEEZING [None]
  - SPUTUM DISCOLOURED [None]
  - BRONCHITIS [None]
